FAERS Safety Report 15188365 (Version 1)
Quarter: 2018Q3

REPORT INFORMATION
  Report Type: Spontaneous
  Country: US (occurrence: US)
  Receive Date: 20180724
  Receipt Date: 20180724
  Transmission Date: 20181010
  Serious: Yes (Hospitalization)
  Sender: FDA-Public Use
  Company Number: US-ACCORD-069842

PATIENT
  Age: 66 Year
  Sex: Male
  Weight: 92.8 kg

DRUGS (21)
  1. TOPOTECAN [Suspect]
     Active Substance: TOPOTECAN HYDROCHLORIDE
     Indication: SMALL CELL LUNG CANCER
     Dosage: INITIALLY RECEIVED FROM 16?JAN?2018 (IV DRIP)
     Route: 041
     Dates: start: 20180317, end: 20180317
  2. CELEBREX [Concomitant]
     Active Substance: CELECOXIB
     Dates: start: 20050317
  3. GABAPENTIN. [Concomitant]
     Active Substance: GABAPENTIN
     Dates: start: 20161208
  4. HYDROCHLOROTHIAZIDE/LOSARTAN [Concomitant]
     Dates: start: 20170404
  5. VITAMINS NOS [Concomitant]
     Active Substance: VITAMINS
     Dates: start: 20120306
  6. COLECALCIFEROL [Concomitant]
     Active Substance: CHOLECALCIFEROL
     Dates: start: 20120306
  7. MEMANTINE HYDROCHLORIDE. [Concomitant]
     Active Substance: MEMANTINE HYDROCHLORIDE
     Dates: start: 20170705
  8. LEVOTHYROXINE. [Concomitant]
     Active Substance: LEVOTHYROXINE
     Dates: start: 20070920
  9. FISH OIL [Concomitant]
     Active Substance: FISH OIL
     Dates: start: 20170404
  10. BENZONATATE. [Concomitant]
     Active Substance: BENZONATATE
     Dates: start: 20161222
  11. SENNA S [Concomitant]
     Active Substance: DOCUSATE SODIUM\SENNA LEAF
     Dates: start: 20170404
  12. OMEPRAZOLE. [Concomitant]
     Active Substance: OMEPRAZOLE
     Dates: start: 20161208
  13. FLONASE [Concomitant]
     Active Substance: FLUTICASONE PROPIONATE
     Dates: start: 20130330
  14. ONDANSETRON [Concomitant]
     Active Substance: ONDANSETRON
     Dates: start: 2017
  15. XGEVA [Concomitant]
     Active Substance: DENOSUMAB
     Dates: start: 20171205
  16. LOMOTIL [Concomitant]
     Active Substance: ATROPINE SULFATE\DIPHENOXYLATE HYDROCHLORIDE
     Dates: start: 20180111
  17. CETIRIZINE [Concomitant]
     Active Substance: CETIRIZINE HYDROCHLORIDE
     Dates: start: 20171107, end: 20180328
  18. PYRIDOXINE [Concomitant]
     Active Substance: PYRIDOXINE
     Dates: start: 20170308
  19. MARINOL [Concomitant]
     Active Substance: DRONABINOL
     Dates: start: 20170222
  20. COMPAZINE [Concomitant]
     Active Substance: PROCHLORPERAZINE MALEATE
     Dates: start: 20170111
  21. CHONDROITIN/GLUCOSAMINE [Concomitant]
     Dates: start: 20170404

REACTIONS (6)
  - Anaemia [Recovered/Resolved with Sequelae]
  - Supraventricular tachycardia [Not Recovered/Not Resolved]
  - Atrial flutter [Not Recovered/Not Resolved]
  - Drug intolerance [Unknown]
  - Thrombocytopenia [Recovered/Resolved]
  - Chronic obstructive pulmonary disease [Not Recovered/Not Resolved]

NARRATIVE: CASE EVENT DATE: 20180320
